FAERS Safety Report 10348051 (Version 1)
Quarter: 2014Q3

REPORT INFORMATION
  Report Type: Spontaneous
  Country: US (occurrence: US)
  Receive Date: 20140729
  Receipt Date: 20140729
  Transmission Date: 20150326
  Serious: Yes (Hospitalization, Other)
  Sender: FDA-Public Use
  Company Number: US-ACTAVIS-2014-16313

PATIENT
  Age: 54 Year
  Sex: Male

DRUGS (1)
  1. DOCETAXEL (ACTAVIS) [Suspect]
     Active Substance: DOCETAXEL
     Indication: LUNG ADENOCARCINOMA METASTATIC
     Dosage: 75 MG/M2, 1/ THREE WEEKS; FOUR CYCLES
     Route: 065
     Dates: start: 201207, end: 201210

REACTIONS (2)
  - Rash maculo-papular [Recovered/Resolved]
  - Alveolitis allergic [Recovered/Resolved]
